FAERS Safety Report 4903030-6 (Version None)
Quarter: 2006Q1

REPORT INFORMATION
  Report Type: 
  Country: None (occurrence: None)
  Receive Date: 20060207
  Receipt Date: 20050527
  Transmission Date: 20060701
  Serious: Yes (Hospitalization, Disabling, Other)
  Sender: FDA-Public Use
  Company Number: US-MERCK-0505USA03394

PATIENT
  Age: 71 Year
  Sex: Male

DRUGS (7)
  1. VIOXX [Suspect]
     Indication: ARTHRALGIA
     Route: 048
     Dates: start: 20010101, end: 20040401
  2. VIOXX [Suspect]
     Route: 048
     Dates: start: 20010101, end: 20040401
  3. ZEBETA [Concomitant]
     Indication: HYPERTENSION
     Route: 048
     Dates: start: 20000101, end: 20020401
  4. ZEBETA [Concomitant]
     Indication: CARDIAC DISORDER
     Route: 048
     Dates: start: 20000101, end: 20020401
  5. PLAQUENIL [Concomitant]
     Route: 048
     Dates: start: 20000101
  6. ASPIRIN [Concomitant]
     Route: 048
     Dates: start: 20000101
  7. DECADRON [Suspect]
     Route: 042
     Dates: start: 20020828

REACTIONS (10)
  - BLOOD GLUCOSE INCREASED [None]
  - CATARACT [None]
  - CEREBRAL INFARCTION [None]
  - CEREBROVASCULAR ACCIDENT [None]
  - CONVULSION [None]
  - POLLAKIURIA [None]
  - ROTATOR CUFF SYNDROME [None]
  - SUBDURAL HAEMATOMA [None]
  - TEMPERATURE INTOLERANCE [None]
  - WEIGHT DECREASED [None]
